FAERS Safety Report 19640615 (Version 2)
Quarter: 2021Q4

REPORT INFORMATION
  Report Type: Spontaneous
  Country: US (occurrence: US)
  Receive Date: 20210730
  Receipt Date: 20211106
  Transmission Date: 20220303
  Serious: Yes (Hospitalization, Other)
  Sender: FDA-Public Use
  Company Number: US-TEVA-2021-US-1935335

PATIENT
  Age: 81 Year
  Sex: Female

DRUGS (1)
  1. VERAPAMIL HYDROCHLORIDE [Suspect]
     Active Substance: VERAPAMIL HYDROCHLORIDE
     Dosage: PROBABLY 45 PLUS YEARS/SHE HAS BEEN ON PRODUCT SINCE SHE WAS 40
     Route: 065

REACTIONS (2)
  - Mastectomy [Unknown]
  - Plasma cell myeloma [Unknown]
